FAERS Safety Report 9096761 (Version 2)
Quarter: 2013Q1

REPORT INFORMATION
  Report Type: Spontaneous
  Country: US (occurrence: US)
  Receive Date: 20130211
  Receipt Date: 20130305
  Transmission Date: 20140127
  Serious: Yes (Life-Threatening, Hospitalization, Other)
  Sender: FDA-Public Use
  Company Number: US-ELI_LILLY_AND_COMPANY-US201211005514

PATIENT
  Age: 68 Year
  Sex: Female
  Weight: 64.4 kg

DRUGS (9)
  1. CYMBALTA [Suspect]
     Indication: FIBROMYALGIA
     Dosage: 90 MG, QD
     Route: 048
  2. CYMBALTA [Suspect]
     Dosage: 60 MG, QD
  3. CYMBALTA [Suspect]
     Dosage: 30 MG, QOD
     Dates: end: 20121027
  4. NEURONTIN [Concomitant]
  5. VALIUM [Concomitant]
  6. FLEXERIL [Concomitant]
  7. ESTRADIOL [Concomitant]
  8. ATENOLOL [Concomitant]
  9. LISINOPRIL [Concomitant]

REACTIONS (6)
  - Unresponsive to stimuli [Recovered/Resolved]
  - Suicidal ideation [Recovered/Resolved]
  - Social avoidant behaviour [Recovered/Resolved]
  - Drug withdrawal syndrome [Recovered/Resolved]
  - Disorientation [Recovered/Resolved]
  - Confusional state [Recovered/Resolved]
